FAERS Safety Report 8654569 (Version 3)
Quarter: 2012Q4

REPORT INFORMATION
  Report Type: 
  Country: FR (occurrence: FR)
  Receive Date: 20120709
  Receipt Date: 20120828
  Transmission Date: 20130627
  Serious: Yes (Life-Threatening, Hospitalization, Other)
  Sender: FDA-Public Use
  Company Number: FR-ASTRAZENECA-2012SE45754

PATIENT
  Age: 26 Year
  Sex: Female
  Weight: 51 kg

DRUGS (9)
  1. XYLOCAINE [Suspect]
     Indication: LOCAL ANAESTHESIA
     Route: 065
     Dates: start: 20120529, end: 20120529
  2. LIDOCAINE [Suspect]
     Route: 065
  3. INEXIUM [Concomitant]
  4. FLODINE [Concomitant]
  5. FERROGRAD [Concomitant]
  6. PREVISCAN [Concomitant]
  7. DAFALGAN [Concomitant]
     Dosage: AS REQUIRED
  8. KARDEGIC [Concomitant]
  9. XYLOCARD [Suspect]

REACTIONS (12)
  - Ischaemic cerebral infarction [Unknown]
  - Multi-organ failure [Unknown]
  - Nervous system disorder [Unknown]
  - Infection [Unknown]
  - Haemothorax [Unknown]
  - Convulsion [Not Recovered/Not Resolved]
  - Bradycardia [Not Recovered/Not Resolved]
  - Cardiac arrest [Not Recovered/Not Resolved]
  - Coma [Unknown]
  - Wrong drug administered [Recovered/Resolved]
  - Cardiac murmur [None]
  - Atrioventricular block second degree [None]
